FAERS Safety Report 8327811-4 (Version None)
Quarter: 2012Q2

REPORT INFORMATION
  Report Type: 
  Country: None (occurrence: None)
  Receive Date: 20120502
  Receipt Date: 20120426
  Transmission Date: 20120825
  Serious: No
  Sender: FDA-Public Use
  Company Number: US-PFIZER INC-2012104401

PATIENT
  Sex: Female
  Weight: 74.83 kg

DRUGS (3)
  1. AZITHROMYCIN [Suspect]
     Indication: COUGH
     Dosage: UNK
     Dates: start: 20120401
  2. ROBITUSSIN PEAK COLD COUGH PLUS CHEST CONGESTION DM [Suspect]
     Indication: COUGH
     Dosage: TWO TEASPOONS 4 TIMES A DAY
     Dates: start: 20120411, end: 20120401
  3. DOXYCYCLINE HYCLATE [Suspect]
     Indication: COUGH
     Dosage: UNK
     Dates: start: 20120401

REACTIONS (3)
  - COUGH [None]
  - DRUG INEFFECTIVE [None]
  - INSOMNIA [None]
